FAERS Safety Report 14675889 (Version 1)
Quarter: 2018Q1

REPORT INFORMATION
  Report Type: Spontaneous
  Country: US (occurrence: US)
  Receive Date: 20180323
  Receipt Date: 20180323
  Transmission Date: 20180509
  Serious: Yes (Other)
  Sender: FDA-Public Use
  Company Number: US-GLAXOSMITHKLINE-US2018GSK049607

PATIENT
  Sex: Male
  Weight: 2.49 kg

DRUGS (1)
  1. GAVISCON REGULAR STRENGTH LIQUID COOL MINT ORAL LIQUI D (ALGINIC ACID) [Suspect]
     Active Substance: ALGINIC ACID\ALUMINUM HYDROXIDE\MAGNESIUM CARBONATE
     Indication: PRODUCT USED FOR UNKNOWN INDICATION
     Dosage: UNK

REACTIONS (3)
  - Immature respiratory system [Unknown]
  - Premature baby [Unknown]
  - Foetal exposure during pregnancy [Unknown]
